FAERS Safety Report 6633201-2 (Version None)
Quarter: 2010Q1

REPORT INFORMATION
  Report Type: 
  Country: None (occurrence: None)
  Receive Date: 20100312
  Receipt Date: 20100309
  Transmission Date: 20100710
  Serious: Yes (Life-Threatening, Hospitalization)
  Sender: FDA-Public Use
  Company Number: PHHO2009ES00455

PATIENT
  Sex: Female
  Weight: 70 kg

DRUGS (4)
  1. ACZ885 ACZ+ [Suspect]
     Indication: RHEUMATOID ARTHRITIS
     Dosage: 300 MG, Q4WK
     Route: 058
     Dates: start: 20080409, end: 20081203
  2. ACZ885 ACZ+ [Suspect]
     Dosage: 150 MG, UNK
     Route: 058
     Dates: end: 20090406
  3. METHOTREXATE [Concomitant]
     Dosage: 20 MG, UNK
     Dates: start: 20071218
  4. PREDNISONE [Concomitant]
     Dosage: 10 MG, UNK
     Dates: start: 20071218

REACTIONS (18)
  - ABDOMINAL PAIN [None]
  - ANAEMIA [None]
  - ANGIOMYOLIPOMA [None]
  - ARTHRITIS BACTERIAL [None]
  - CONCOMITANT DISEASE PROGRESSION [None]
  - ESCHERICHIA INFECTION [None]
  - LEUKOPENIA [None]
  - MALAISE [None]
  - NAUSEA [None]
  - NEPHRECTOMY [None]
  - PYREXIA [None]
  - RENAL FAILURE [None]
  - SEPSIS [None]
  - STAPHYLOCOCCUS TEST POSITIVE [None]
  - TUMOUR INVASION [None]
  - URINARY TRACT DISORDER [None]
  - URINARY TRACT INFECTION [None]
  - VOMITING [None]
